FAERS Safety Report 7935488-2 (Version None)
Quarter: 2011Q4

REPORT INFORMATION
  Report Type: 
  Country: None (occurrence: None)
  Receive Date: 20111123
  Receipt Date: 20111114
  Transmission Date: 20120403
  Serious: Yes (Hospitalization, Other)
  Sender: FDA-Public Use
  Company Number: US-BIOGENIDEC-2011BI029771

PATIENT
  Age: 57 Year
  Sex: Female

DRUGS (1)
  1. TYSABRI [Suspect]
     Indication: MULTIPLE SCLEROSIS
     Route: 042
     Dates: start: 20070207, end: 20110920

REACTIONS (4)
  - ABASIA [None]
  - CEREBRAL HAEMORRHAGE [None]
  - ACTIVITIES OF DAILY LIVING IMPAIRED [None]
  - MENINGIOMA [None]
